FAERS Safety Report 4349699-9 (Version None)
Quarter: 2004Q2

REPORT INFORMATION
  Report Type: 
  Country: None (occurrence: None)
  Receive Date: 20040426
  Receipt Date: 20030731
  Transmission Date: 20050107
  Serious: Yes (Other)
  Sender: FDA-Public Use
  Company Number: 2003032807

PATIENT
  Sex: Female

DRUGS (3)
  1. ZITHROMAX [Suspect]
     Indication: PNEUMONIA
     Dosage: 500 MG (DAILY), INTRAVENOUS
     Route: 042
     Dates: start: 20030701
  2. DRUG USED IN DIABETES (DRUG USED IN DIABETES) [Concomitant]
  3. CARDIOVASCULAR SYSTEM DRUGS (CARDIOVASCULAR SYSTEM DRUGS) [Concomitant]

REACTIONS (2)
  - HYPOTENSION [None]
  - MEDICATION ERROR [None]
